FAERS Safety Report 19231172 (Version 1)
Quarter: 2021Q2

REPORT INFORMATION
  Report Type: Spontaneous
  Country: US (occurrence: US)
  Receive Date: 20210507
  Receipt Date: 20210507
  Transmission Date: 20210717
  Serious: Yes (Other)
  Sender: FDA-Public Use
  Company Number: US-MYLANLABS-2021M1026778

PATIENT
  Sex: Female

DRUGS (1)
  1. CLOZAPINE MYLAN [Suspect]
     Active Substance: CLOZAPINE
     Indication: SCHIZOPHRENIA
     Dosage: UNK

REACTIONS (1)
  - Drug ineffective [Unknown]
